FAERS Safety Report 18562880 (Version 2)
Quarter: 2020Q4

REPORT INFORMATION
  Report Type: Report from Study
  Country: KR (occurrence: KR)
  Receive Date: 20201201
  Receipt Date: 20201218
  Transmission Date: 20210114
  Serious: Yes (Hospitalization)
  Sender: FDA-Public Use
  Company Number: KR-CELLTRION INC.-2020KR032727

PATIENT

DRUGS (21)
  1. ACALABRUTINIB. [Suspect]
     Active Substance: ACALABRUTINIB
     Indication: DIFFUSE LARGE B-CELL LYMPHOMA
     Dosage: UNK, FOR 28 DAYS AT BID/DAY
     Dates: end: 20201113
  2. CELEBREX [Concomitant]
     Active Substance: CELECOXIB
     Indication: INTERVERTEBRAL DISC PROTRUSION
     Dosage: 200 MICROGRAM, FREQUENCY: 2
     Route: 048
     Dates: start: 20201022
  3. PROMAC [Concomitant]
     Active Substance: NITROFURANTOIN
     Indication: PROPHYLAXIS
     Dosage: 75 MG,  FREQUENCY: 2
     Route: 048
     Dates: start: 20200917
  4. TRUXIMA [Suspect]
     Active Substance: RITUXIMAB-ABBS
     Dosage: 645 MG, CYCLIC  (ONE 500 MG VIAL)
     Route: 042
     Dates: start: 20201027
  5. JOINS [Concomitant]
     Indication: INTERVERTEBRAL DISC PROTRUSION
     Dosage: 200 MG, FREQUENCY: 2
     Route: 048
     Dates: start: 20200917
  6. PLAVIX [Concomitant]
     Active Substance: CLOPIDOGREL BISULFATE
     Indication: ANGINA PECTORIS
     Dosage: 75 MG FREQUENCY: 1
     Route: 048
     Dates: start: 20200224
  7. LYRICA [Concomitant]
     Active Substance: PREGABALIN
     Indication: INTERVERTEBRAL DISC PROTRUSION
     Dosage: 75 MG, FREQUENCY: 2
     Route: 048
     Dates: start: 20201022
  8. DICAMAX [Concomitant]
     Indication: PROPHYLAXIS
     Dosage: 1000 MG, FREQUENCY: 1
     Route: 048
     Dates: start: 20200218
  9. AMODIPIN [Concomitant]
     Indication: HYPERTENSION
     Dosage: 5 MG FREQUENCY: 1
     Route: 048
  10. ISOTRIL [Concomitant]
     Active Substance: ISOSORBIDE MONONITRATE
     Indication: ANGINA PECTORIS
     Dosage: 60 MG FREQUENCY: 1
     Route: 048
     Dates: start: 20200224
  11. TENORMIN [Concomitant]
     Active Substance: ATENOLOL
     Indication: HYPERTENSION
     Dosage: 25 MG FREQUENCY: 1
     Route: 048
     Dates: start: 20200224
  12. LENALIDOMIDE [Suspect]
     Active Substance: LENALIDOMIDE
     Indication: DIFFUSE LARGE B-CELL LYMPHOMA
     Dosage: UNK, QD/DAY
     Dates: end: 20201113
  13. TRAJENTA DUO [Concomitant]
     Active Substance: LINAGLIPTIN\METFORMIN HYDROCHLORIDE
     Indication: DIABETES MELLITUS
     Dosage: 1 TAB, FREQUENCY: 2
     Route: 048
     Dates: start: 20200601
  14. EXONIN [Concomitant]
     Indication: INTERVERTEBRAL DISC PROTRUSION
     Dosage: 75 MG, FREQUENCY: 2
     Route: 048
     Dates: start: 20201022
  15. BARACLUDE [Concomitant]
     Active Substance: ENTECAVIR
     Indication: PROPHYLAXIS
     Dosage: 0.5 MG, FREQUENCY: 1
     Route: 048
     Dates: start: 20200121
  16. CRESTOR [Concomitant]
     Active Substance: ROSUVASTATIN CALCIUM
     Indication: PROPHYLAXIS
     Dosage: 5 MG FREQUENCY: 1
     Route: 048
     Dates: start: 20200601
  17. SIGMART [Concomitant]
     Active Substance: NICORANDIL
     Indication: ANGINA PECTORIS
     Dosage: 5 MG FREQUENCY: 1
     Route: 048
     Dates: start: 20200601
  18. TRUXIMA [Suspect]
     Active Substance: RITUXIMAB-ABBS
     Indication: DIFFUSE LARGE B-CELL LYMPHOMA
     Dosage: 645 MG, CYCLIC  (TWO 100 MG VIAL)
     Route: 042
     Dates: start: 20200929, end: 20201026
  19. TRUXIMA [Suspect]
     Active Substance: RITUXIMAB-ABBS
     Dosage: 645 MG, CYCLIC  (ONE 500 MG VIAL)
     Route: 042
     Dates: start: 20200929, end: 20201026
  20. TRUXIMA [Suspect]
     Active Substance: RITUXIMAB-ABBS
     Dosage: 645 MG, CYCLIC  (TWO 100 MG VIAL)
     Route: 042
     Dates: start: 20201027
  21. AMARYL [Concomitant]
     Active Substance: GLIMEPIRIDE
     Indication: DIABETES MELLITUS
     Dosage: 2 MG FREQUENCY: 2
     Route: 048
     Dates: start: 20200601

REACTIONS (4)
  - Febrile neutropenia [Recovered/Resolved]
  - Contraindicated product administered [Unknown]
  - Underdose [Unknown]
  - Asthma [Recovered/Resolved]

NARRATIVE: CASE EVENT DATE: 20201112
